FAERS Safety Report 5501706-3 (Version None)
Quarter: 2007Q4

REPORT INFORMATION
  Report Type: 
  Country: None (occurrence: None)
  Receive Date: 20071030
  Receipt Date: 20071024
  Transmission Date: 20080405
  Serious: Yes (Death, Hospitalization, Other)
  Sender: FDA-Public Use
  Company Number: US-AVENTIS-200719792GDDC

PATIENT
  Age: 60 Year
  Sex: Female
  Weight: 87.54 kg

DRUGS (2)
  1. TAXOTERE [Suspect]
     Indication: BREAST CANCER
     Dosage: DOSE: UNK
     Route: 042
  2. DOXORUBICIN HCL [Suspect]
     Indication: BREAST CANCER
     Route: 042
     Dates: start: 20060719

REACTIONS (3)
  - ATRIAL FIBRILLATION [None]
  - CARDIAC FAILURE CONGESTIVE [None]
  - DYSPNOEA [None]
